FAERS Safety Report 9765897 (Version 1)
Quarter: 2013Q4

REPORT INFORMATION
  Report Type: Spontaneous
  Country: US (occurrence: US)
  Receive Date: 20131217
  Receipt Date: 20131217
  Transmission Date: 20140711
  Serious: No
  Sender: FDA-Public Use
  Company Number: US-GLAXOSMITHKLINE-A1013288A

PATIENT
  Age: 53 Year
  Sex: Male
  Weight: 111.8 kg

DRUGS (15)
  1. VOTRIENT [Suspect]
     Indication: PRODUCT USED FOR UNKNOWN INDICATION
     Dosage: 800MG PER DAY
     Route: 048
  2. ADVAIR [Concomitant]
  3. LOVAZA [Concomitant]
  4. COENZYME Q10 [Concomitant]
  5. LANTUS [Concomitant]
  6. NEXIUM [Concomitant]
  7. FUROSEMIDE [Concomitant]
  8. LISINOPRIL [Concomitant]
  9. ATORVASTATIN [Concomitant]
  10. COMBIVENT [Concomitant]
  11. FERROUS SULFATE [Concomitant]
  12. CARVEDILOL [Concomitant]
  13. IPRATROPIUM BROMIDE + SALBUTAMOL [Concomitant]
  14. HYDROCORTISONE [Concomitant]
  15. RADIATION THERAPY [Concomitant]

REACTIONS (2)
  - Seborrhoea [Unknown]
  - Neoplasm [Unknown]
